FAERS Safety Report 16837275 (Version 1)
Quarter: 2019Q3

REPORT INFORMATION
  Report Type: Spontaneous
  Country: DE (occurrence: DE)
  Receive Date: 20190923
  Receipt Date: 20190923
  Transmission Date: 20191005
  Serious: Yes (Other)
  Sender: FDA-Public Use
  Company Number: DE-US-PROVELL PHARMACEUTICALS LLC-E2B_90070721

PATIENT
  Sex: Female

DRUGS (1)
  1. EUTHYROX 125 NF [Suspect]
     Active Substance: LEVOTHYROXINE SODIUM
     Indication: PRODUCT USED FOR UNKNOWN INDICATION

REACTIONS (4)
  - Discomfort [Unknown]
  - Diabetes mellitus [Unknown]
  - Cataract [Unknown]
  - Glaucoma [Unknown]
